FAERS Safety Report 6184937-1 (Version None)
Quarter: 2009Q2

REPORT INFORMATION
  Report Type: 
  Country: None (occurrence: None)
  Receive Date: 20090511
  Receipt Date: 20090504
  Transmission Date: 20091009
  Serious: Yes (Other)
  Sender: FDA-Public Use
  Company Number: US-RANBAXY-2009US-23693

PATIENT

DRUGS (2)
  1. ISOTRETINOIN [Suspect]
     Indication: DRUG USE FOR UNKNOWN INDICATION
     Dosage: 30 MG, UNK
     Route: 048
     Dates: end: 20090301
  2. ISOTRETINOIN [Suspect]
     Dosage: 40 MG, UNK
     Route: 048
     Dates: end: 20090301

REACTIONS (2)
  - RHINOPLASTY [None]
  - THERAPY CESSATION [None]
